FAERS Safety Report 16518176 (Version 2)
Quarter: 2019Q3

REPORT INFORMATION
  Report Type: Spontaneous
  Country: US (occurrence: US)
  Receive Date: 20190702
  Receipt Date: 20190702
  Transmission Date: 20191004
  Serious: No
  Sender: FDA-Public Use
  Company Number: US-GALDERMA-US19001095

PATIENT
  Age: 31 Year
  Sex: Female

DRUGS (7)
  1. PROACTIV MOISTURE REPAIR [Concomitant]
     Active Substance: COSMETICS
     Route: 061
     Dates: start: 20180215, end: 201811
  2. PROACTIV MD DEEP CLEANSING FACE WASH [Concomitant]
     Active Substance: COSMETICS
     Route: 061
     Dates: start: 20180215, end: 201811
  3. PROACTIV MD BALANCING TONER [Concomitant]
     Active Substance: COSMETICS
     Route: 061
     Dates: start: 20180215, end: 201811
  4. PROACTIV SKIN CLEARING WATER GEL [Concomitant]
     Route: 061
     Dates: start: 20180215, end: 201811
  5. PROACTIV MD ADAPALENE ACNE TREATMENT [Suspect]
     Active Substance: ADAPALENE
     Indication: PRODUCT USED FOR UNKNOWN INDICATION
     Dosage: 0.1%
     Route: 061
     Dates: start: 20180215, end: 201811
  6. PROACTIV MD DAILY OIL CONTROL SPF 30 [Suspect]
     Active Substance: AVOBENZONE\OCTISALATE\OCTOCRYLENE
     Indication: PRODUCT USED FOR UNKNOWN INDICATION
     Route: 061
     Dates: start: 20180215, end: 201811
  7. PROACTIV RENEWING CLEANSER [Concomitant]
     Active Substance: BENZOYL PEROXIDE
     Route: 061
     Dates: start: 20180215, end: 201811

REACTIONS (7)
  - Skin exfoliation [Recovering/Resolving]
  - Inappropriate schedule of product administration [Recovered/Resolved]
  - Dry skin [Recovering/Resolving]
  - Skin irritation [Recovering/Resolving]
  - Erythema [Recovering/Resolving]
  - Underdose [Recovered/Resolved]
  - Drug ineffective [Recovering/Resolving]

NARRATIVE: CASE EVENT DATE: 20180215
